FAERS Safety Report 16189187 (Version 1)
Quarter: 2019Q2

REPORT INFORMATION
  Report Type: Spontaneous
  Country: US (occurrence: US)
  Receive Date: 20190411
  Receipt Date: 20190411
  Transmission Date: 20190711
  Serious: Yes (Hospitalization)
  Sender: FDA-Public Use
  Company Number: None

PATIENT
  Sex: Female

DRUGS (11)
  1. DICLOFENAC 75MG TABLETS DR [Concomitant]
     Dates: start: 20190405
  2. HYDROXYCHLORIDE 200MG TABLETS [Concomitant]
     Dates: start: 20190227
  3. TIZANIDINE 4MG TABLETS [Concomitant]
     Active Substance: TIZANIDINE HYDROCHLORIDE
     Dates: start: 20190405
  4. LEVOTHYROXINE 75MCG TABLETS [Concomitant]
     Active Substance: LEVOTHYROXINE
     Dates: start: 20190225
  5. QUETIAPINE 400MG TABLETS [Concomitant]
     Dates: start: 20190226
  6. ENBREL [Suspect]
     Active Substance: ETANERCEPT
     Indication: ANKYLOSING SPONDYLITIS
     Dosage: ?          OTHER FREQUENCY:ONCE A WEEK;?
     Route: 058
  7. FOLIC ACID 1MG TABLETS [Concomitant]
     Active Substance: FOLIC ACID
     Dates: start: 20190303
  8. LYRICA 200MG CAPSULE [Concomitant]
     Dates: start: 20190320
  9. METHOTREXATE 2.5MG TABLETS [Concomitant]
     Active Substance: METHOTREXATE
     Dates: start: 20190403
  10. SERTRALINE 50MG TABLETS [Concomitant]
     Active Substance: SERTRALINE HYDROCHLORIDE
     Dates: start: 20190130
  11. CYCLOBENZAPRINE 10MG TABLETS [Concomitant]
     Active Substance: CYCLOBENZAPRINE HYDROCHLORIDE
     Dates: start: 20190304

REACTIONS (3)
  - Fall [None]
  - Headache [None]
  - Concussion [None]
